FAERS Safety Report 10162356 (Version 1)
Quarter: 2014Q2

REPORT INFORMATION
  Report Type: Report from Study
  Country: NL (occurrence: NL)
  Receive Date: 20140509
  Receipt Date: 20140509
  Transmission Date: 20141212
  Serious: Yes (Hospitalization)
  Sender: FDA-Public Use
  Company Number: NL-SA-2014SA057891

PATIENT
  Age: 7 Year
  Sex: Female
  Weight: 26.7 kg

DRUGS (1)
  1. PLERIXAFOR [Suspect]
     Indication: EWING^S SARCOMA
     Route: 065

REACTIONS (1)
  - Febrile neutropenia [Recovered/Resolved]
